FAERS Safety Report 17009155 (Version 1)
Quarter: 2019Q4

REPORT INFORMATION
  Report Type: Spontaneous
  Country: US (occurrence: US)
  Receive Date: 20190927
  Receipt Date: 20190927
  Transmission Date: 20200122
  Serious: Yes (Death)
  Sender: FDA-Public Use
  Company Number: None

PATIENT
  Age: 66 Year
  Sex: Female
  Weight: 64.5 kg

DRUGS (2)
  1. TEMOZOLOMIDE. [Suspect]
     Active Substance: TEMOZOLOMIDE
     Dates: end: 20190831
  2. XELODA [Suspect]
     Active Substance: CAPECITABINE
     Dates: end: 20190831

REACTIONS (7)
  - Colitis [None]
  - Infection [None]
  - Performance status decreased [None]
  - Metastases to liver [None]
  - Lethargy [None]
  - Mental status changes [None]
  - Confusional state [None]

NARRATIVE: CASE EVENT DATE: 20190924
